FAERS Safety Report 6008908-0 (Version None)
Quarter: 2008Q4

REPORT INFORMATION
  Report Type: 
  Country: None (occurrence: None)
  Receive Date: 20081217
  Receipt Date: 20060105
  Transmission Date: 20090506
  Serious: Yes (Other)
  Sender: FDA-Public Use
  Company Number: US-BAXTER-2008BH011608

PATIENT

DRUGS (3)
  1. POLYGAM [Suspect]
     Indication: MYASTHENIA GRAVIS
     Route: 042
  2. GAMMAGARD LIQUID [Suspect]
     Indication: MYASTHENIA GRAVIS
     Route: 042
  3. GAMUNEX [Suspect]
     Indication: MYASTHENIA GRAVIS
     Route: 042

REACTIONS (6)
  - DIZZINESS [None]
  - HEADACHE [None]
  - HYPERHIDROSIS [None]
  - NAUSEA [None]
  - TREMOR [None]
  - VERTIGO [None]
